FAERS Safety Report 5823038-6 (Version None)
Quarter: 2008Q3

REPORT INFORMATION
  Report Type: 
  Country: None (occurrence: None)
  Receive Date: 20080725
  Receipt Date: 20070829
  Transmission Date: 20090109
  Serious: No
  Sender: FDA-Public Use
  Company Number: US-AMGEN-KDL241345

PATIENT
  Sex: Male

DRUGS (4)
  1. PROCRIT [Suspect]
     Indication: ANAEMIA OF MALIGNANT DISEASE
     Dates: start: 20070101
  2. PEG-INTRON [Concomitant]
  3. RIBAVIRIN [Concomitant]
  4. LANTUS [Concomitant]

REACTIONS (1)
  - POLLAKIURIA [None]
